FAERS Safety Report 9250992 (Version 4)
Quarter: 2022Q4

REPORT INFORMATION
  Report Type: Spontaneous
  Country: AR (occurrence: AR)
  Receive Date: 20130424
  Receipt Date: 20221228
  Transmission Date: 20230113
  Serious: Yes (Hospitalization, Other)
  Sender: FDA-Public Use
  Company Number: PHHY2013AR039856

PATIENT
  Sex: Female
  Weight: 2.38 kg

DRUGS (6)
  1. TRILEPTAL [Suspect]
     Active Substance: OXCARBAZEPINE
     Indication: Foetal exposure during pregnancy
     Dosage: MATERNAL DOSE: UNKNOWN
     Route: 064
     Dates: start: 2002
  2. TRILEPTAL [Suspect]
     Active Substance: OXCARBAZEPINE
     Dosage: MATERNAL DOSE: 300 MG, QD
     Route: 064
     Dates: start: 2012
  3. TRILEPTAL [Suspect]
     Active Substance: OXCARBAZEPINE
     Dosage: MATERNAL DOSE: 1200 MG, QD (4 TABLETS)
     Route: 064
  4. TRILEPTAL [Suspect]
     Active Substance: OXCARBAZEPINE
     Dosage: MATERNAL DOSE: 2 DOSAGE FORM, BID (300 MG / 2 BOXES PER MONTH)
     Route: 064
     Dates: start: 20031228
  5. TRILEPTAL [Suspect]
     Active Substance: OXCARBAZEPINE
     Dosage: MATERNAL DOSE:4 DOSAGE FORM, BID (300 MG / 2 BOXES PER MONTH)
     Route: 064
     Dates: start: 20031228
  6. ISOXSUPRINE [Concomitant]
     Active Substance: ISOXSUPRINE
     Indication: Foetal exposure during pregnancy
     Dosage: MATERNAL DOSE: UNKNOWN
     Route: 064

REACTIONS (15)
  - Low birth weight baby [Recovered/Resolved]
  - Premature baby [Unknown]
  - Hypothermia [Unknown]
  - Sleep disorder [Unknown]
  - Bronchiolitis [Recovering/Resolving]
  - Calcium deficiency [Recovered/Resolved]
  - Tooth fracture [Recovered/Resolved]
  - Gastrointestinal disorder [Unknown]
  - Hypersensitivity [Recovered/Resolved]
  - Dermatitis atopic [Recovered/Resolved]
  - Allergic bronchitis [Unknown]
  - Dermatitis allergic [Unknown]
  - Catarrh [Recovering/Resolving]
  - Foetal exposure during pregnancy [Unknown]
  - Exposure via breast milk [Unknown]

NARRATIVE: CASE EVENT DATE: 20120628
